FAERS Safety Report 7817481-3 (Version None)
Quarter: 2011Q4

REPORT INFORMATION
  Report Type: 
  Country: None (occurrence: None)
  Receive Date: 20111017
  Receipt Date: 20111006
  Transmission Date: 20120403
  Serious: Yes (Life-Threatening, Hospitalization, Other)
  Sender: FDA-Public Use
  Company Number: BR-ROCHE-664194

PATIENT
  Sex: Female
  Weight: 58 kg

DRUGS (13)
  1. METICORTEN [Concomitant]
  2. ASPIRIN [Concomitant]
  3. MABTHERA [Suspect]
     Indication: RHEUMATOID ARTHRITIS
     Dosage: DOSE: 100 MG/10ML;FORM:INFUSION
     Route: 042
     Dates: start: 20080501, end: 20090901
  4. SIMVASTATIN [Concomitant]
     Dosage: SINVASTATIN
  5. CLOPIDOGREL BISULFATE [Concomitant]
  6. DOMPERIDONE [Concomitant]
  7. PREDNISONE [Concomitant]
  8. OMEPRAZOLE [Concomitant]
  9. CRESTOR [Concomitant]
  10. CYMBALTA [Concomitant]
  11. ENOXAPARIN SODIUM [Concomitant]
  12. OMEPRAZOLE [Concomitant]
  13. METHOTREXATE [Concomitant]

REACTIONS (7)
  - POST PROCEDURAL COMPLICATION [None]
  - SPINAL DISORDER [None]
  - SPEECH DISORDER [None]
  - RHEUMATOID ARTHRITIS [None]
  - ABASIA [None]
  - CEREBROVASCULAR ACCIDENT [None]
  - VASCULITIS [None]
